FAERS Safety Report 9846172 (Version 1)
Quarter: 2014Q1

REPORT INFORMATION
  Report Type: Spontaneous
  Country: US (occurrence: US)
  Receive Date: 20140127
  Receipt Date: 20140127
  Transmission Date: 20141002
  Serious: Yes (Hospitalization, Other)
  Sender: FDA-Public Use
  Company Number: US-ELI_LILLY_AND_COMPANY-US201401005486

PATIENT
  Sex: Female
  Weight: 71.66 kg

DRUGS (16)
  1. ADCIRCA [Suspect]
     Indication: PULMONARY HYPERTENSION
     Dosage: 40 MG, QD
     Route: 048
     Dates: start: 20131001
  2. AMLODIPINE [Suspect]
     Dosage: 5 MG, QD
     Route: 048
  3. TYVASO [Concomitant]
     Dosage: UNK
     Route: 055
  4. LEVOTHYROXINE [Concomitant]
     Dosage: 50 UG, QD
     Route: 048
  5. NASONEX [Concomitant]
     Dosage: 50 UG, BID
     Route: 045
  6. RESTASIS [Concomitant]
     Dosage: 1 GTT, BID
     Route: 047
  7. PREVIDENT [Concomitant]
     Indication: DRY MOUTH
     Dosage: 5000 DF, QD
     Route: 061
  8. VITAMIN D3 [Concomitant]
     Dosage: 2000 DF, BID
  9. PREVACID [Concomitant]
     Dosage: 30 MG, BID
     Route: 048
  10. MOBIC [Concomitant]
     Dosage: 7.5 MG, BID
  11. BACTRIM DS [Concomitant]
     Dosage: 1 DF, MWF
     Route: 048
  12. PILOCARPINE [Concomitant]
     Dosage: 5 MG, QID
     Route: 048
  13. NASONEX [Concomitant]
     Dosage: 50 UG, QD
     Route: 045
  14. ZYRTEC [Concomitant]
     Dosage: 10 MG, QD
  15. SENNA                              /00142201/ [Concomitant]
     Dosage: 8.6 MG, BID
  16. FUROSEMIDE [Concomitant]
     Dosage: 20 MG, QD
     Route: 048

REACTIONS (20)
  - Pneumonia [Unknown]
  - Influenza [Unknown]
  - Interstitial lung disease [Unknown]
  - General physical health deterioration [Unknown]
  - Dyspnoea exertional [Not Recovered/Not Resolved]
  - Cardiac failure congestive [Unknown]
  - Malaise [Unknown]
  - Oedema peripheral [Unknown]
  - Diarrhoea [Unknown]
  - Abdominal pain [Unknown]
  - Enteritis [Unknown]
  - Clostridium difficile infection [Unknown]
  - Cough [Unknown]
  - Decreased appetite [Unknown]
  - Tremor [Unknown]
  - Urine output decreased [Unknown]
  - Anaemia [Unknown]
  - Myalgia [Unknown]
  - Fatigue [Unknown]
  - Brain natriuretic peptide increased [Unknown]
